FAERS Safety Report 16765164 (Version 1)
Quarter: 2019Q3

REPORT INFORMATION
  Report Type: Spontaneous
  Country: US (occurrence: US)
  Receive Date: 20190712
  Receipt Date: 20190712
  Transmission Date: 20191005
  Serious: Yes (Other)
  Sender: FDA-Public Use
  Company Number: None

PATIENT
  Age: 81 Year
  Sex: Male

DRUGS (1)
  1. DABIGATRAN [Suspect]
     Active Substance: DABIGATRAN
     Indication: ATRIAL FIBRILLATION
     Dates: start: 20190409, end: 20190413

REACTIONS (4)
  - Haematuria [None]
  - Haemorrhage [None]
  - Nephrolithiasis [None]
  - Dizziness [None]

NARRATIVE: CASE EVENT DATE: 20190423
